FAERS Safety Report 10230952 (Version 1)
Quarter: 2014Q2

REPORT INFORMATION
  Report Type: Spontaneous
  Country: US (occurrence: None)
  Receive Date: 20140610
  Receipt Date: 20140610
  Transmission Date: 20141212
  Serious: Yes (Hospitalization)
  Sender: FDA-Public Use
  Company Number: None

PATIENT
  Age: 67 Year
  Sex: Female
  Weight: 108 kg

DRUGS (1)
  1. SUNITINIB MALATE (SU011248 L-MALATE; SUTENT) [Suspect]
     Dates: end: 20140508

REACTIONS (8)
  - Malaise [None]
  - Nausea [None]
  - Vomiting [None]
  - Blood creatinine increased [None]
  - Diarrhoea [None]
  - Abdominal pain [None]
  - Colitis [None]
  - Refusal of treatment by patient [None]
